FAERS Safety Report 4797478-0 (Version None)
Quarter: 2005Q4

REPORT INFORMATION
  Report Type: 
  Country: None (occurrence: None)
  Receive Date: 20051011
  Receipt Date: 20041123
  Transmission Date: 20060501
  Serious: Yes (Hospitalization)
  Sender: FDA-Public Use
  Company Number: 9364

PATIENT
  Age: 58 Year
  Sex: Female

DRUGS (6)
  1. METHOTREXATE [Suspect]
     Dosage: 25 MG WEEKLY SC
     Route: 058
     Dates: start: 19991109
  2. ENBREL [Suspect]
     Indication: RHEUMATOID ARTHRITIS
     Dosage: 25 MG 2/WK SC
     Route: 058
     Dates: start: 20021031, end: 20040331
  3. HUMIRA [Suspect]
     Dosage: 40 MG PER MINUTE SC
     Route: 058
     Dates: start: 20040401
  4. PROTONIX [Concomitant]
  5. AGGRENOX [Concomitant]
  6. LEXAPRO [Concomitant]

REACTIONS (1)
  - GASTRIC ULCER HAEMORRHAGE [None]
